FAERS Safety Report 7607977-1 (Version None)
Quarter: 2011Q3

REPORT INFORMATION
  Report Type: 
  Country: None (occurrence: None)
  Receive Date: 20110714
  Receipt Date: 20110711
  Transmission Date: 20111222
  Serious: No
  Sender: FDA-Public Use
  Company Number: US-PFIZER INC-2011155999

PATIENT
  Sex: Female
  Weight: 63.492 kg

DRUGS (2)
  1. PRISTIQ [Suspect]
     Indication: DEPRESSION
     Dosage: 50 MG, DAILY
     Route: 048
     Dates: start: 20110101, end: 20110701
  2. PRISTIQ [Suspect]
     Indication: ANXIETY

REACTIONS (3)
  - DIZZINESS [None]
  - NAUSEA [None]
  - DRUG WITHDRAWAL SYNDROME [None]
